FAERS Safety Report 6229127-9 (Version None)
Quarter: 2009Q2

REPORT INFORMATION
  Report Type: 
  Country: None (occurrence: None)
  Receive Date: 20090615
  Receipt Date: 20090604
  Transmission Date: 20091009
  Serious: Yes (Other)
  Sender: FDA-Public Use
  Company Number: US-JNJFOC-20090602429

PATIENT
  Age: 78 Year
  Sex: Female
  Weight: 74.84 kg

DRUGS (5)
  1. TYLENOL (CAPLET) [Suspect]
     Route: 048
  2. TYLENOL (CAPLET) [Suspect]
     Indication: ARTHRALGIA
     Route: 048
  3. ASPIRIN [Concomitant]
     Indication: ANTICOAGULANT THERAPY
  4. ENALAPRIL [Concomitant]
     Indication: HYPERTENSION
  5. EXTRA STRENGTH TYLENOL [Concomitant]
     Indication: ARTHRALGIA

REACTIONS (3)
  - CHOKING [None]
  - DYSPHAGIA [None]
  - WRONG TECHNIQUE IN DRUG USAGE PROCESS [None]
